FAERS Safety Report 7719564-5 (Version None)
Quarter: 2011Q3

REPORT INFORMATION
  Report Type: 
  Country: None (occurrence: None)
  Receive Date: 20110830
  Receipt Date: 20110822
  Transmission Date: 20111222
  Serious: Yes (Other)
  Sender: FDA-Public Use
  Company Number: US-US-EMD SERONO, INC.-7028114

PATIENT
  Sex: Female
  Weight: 69 kg

DRUGS (2)
  1. REBIF [Suspect]
     Indication: MULTIPLE SCLEROSIS
     Route: 058
     Dates: start: 20080716
  2. ASPIRIN [Concomitant]

REACTIONS (6)
  - NAUSEA [None]
  - THYROID DISORDER [None]
  - APHASIA [None]
  - MULTIPLE SCLEROSIS [None]
  - LYMPHOMA [None]
  - CONVULSION [None]
